FAERS Safety Report 10090643 (Version 2)
Quarter: 2014Q2

REPORT INFORMATION
  Report Type: Spontaneous
  Country: US (occurrence: None)
  Receive Date: 20140417
  Receipt Date: 20140627
  Transmission Date: 20141212
  Serious: Yes (Hospitalization)
  Sender: FDA-Public Use
  Company Number: UTC-047051

PATIENT
  Age: 53 Year
  Sex: Female
  Weight: 68 kg

DRUGS (2)
  1. TYVASO (TREPROSTINIL SODIUM (INHALED)) INHALATION GAS, .6MG/ML [Suspect]
     Indication: PULMONARY ARTERIAL HYPERTENSION
     Route: 055
     Dates: start: 20121008
  2. ADCIRCA (TADALAFIL) [Concomitant]

REACTIONS (2)
  - Cellulitis [None]
  - Infection [None]
